FAERS Safety Report 11846214 (Version 2)
Quarter: 2022Q4

REPORT INFORMATION
  Report Type: Spontaneous
  Country: DE (occurrence: DE)
  Receive Date: 20151217
  Receipt Date: 20221212
  Transmission Date: 20230113
  Serious: Yes (Life-Threatening, Hospitalization, Disabling, Other)
  Sender: FDA-Public Use
  Company Number: None

PATIENT
  Age: 97 Year
  Sex: Female
  Weight: 49 kg

DRUGS (5)
  1. PRAMIPEXOLE [Suspect]
     Active Substance: PRAMIPEXOLE
     Indication: Parkinson^s disease
     Dosage: HALF TABLET  (FOA) OTHER
     Route: 065
     Dates: start: 1995
  2. PRAMIPEXOLE [Suspect]
     Active Substance: PRAMIPEXOLE
     Route: 048
  3. BENSERAZIDE HYDROCHLORIDE\LEVODOPA [Suspect]
     Active Substance: BENSERAZIDE HYDROCHLORIDE\LEVODOPA
     Indication: Parkinson^s disease
     Dosage: (FOA) OTHER
     Route: 065
     Dates: start: 1995, end: 201510
  4. BENSERAZIDE HYDROCHLORIDE\LEVODOPA [Suspect]
     Active Substance: BENSERAZIDE HYDROCHLORIDE\LEVODOPA
     Dosage: (FOA) OTHER
     Route: 065
  5. ASPIRIN [Concomitant]
     Active Substance: ASPIRIN
     Indication: Cardiac failure
     Dosage: FOA OTHER
     Route: 065

REACTIONS (7)
  - Myocardial infarction [Recovered/Resolved]
  - Intention tremor [Not Recovered/Not Resolved]
  - Sleep disorder [Unknown]
  - Restlessness [Unknown]
  - Renal failure [Recovering/Resolving]
  - Anxiety [Not Recovered/Not Resolved]
  - Tremor [Recovered/Resolved with Sequelae]

NARRATIVE: CASE EVENT DATE: 20150801
